FAERS Safety Report 15456264 (Version 1)
Quarter: 2018Q4

REPORT INFORMATION
  Report Type: Spontaneous
  Country: US (occurrence: US)
  Receive Date: 20181002
  Receipt Date: 20181002
  Transmission Date: 20190204
  Serious: No
  Sender: FDA-Public Use
  Company Number: US-INCYTE CORPORATION-2018IN008119

PATIENT

DRUGS (2)
  1. JAKAFI [Suspect]
     Active Substance: RUXOLITINIB
     Indication: MYELOFIBROSIS
     Dosage: 15 MG, BID
     Route: 048
     Dates: start: 20171025
  2. JAKAFI [Suspect]
     Active Substance: RUXOLITINIB
     Dosage: 15MG BID ON NON DIALYSIS DAYS AND 30 MG AT BEDTIME  ON DIALYSIS DAYS
     Route: 048

REACTIONS (1)
  - Malaise [Unknown]
